FAERS Safety Report 7433587-5 (Version None)
Quarter: 2011Q2

REPORT INFORMATION
  Report Type: 
  Country: None (occurrence: None)
  Receive Date: 20110422
  Receipt Date: 20110419
  Transmission Date: 20111010
  Serious: No
  Sender: FDA-Public Use
  Company Number: US-B.I. PHARMACEUTICALS,INC./RIDGEFIELD-2011-BP-11298BP

PATIENT
  Sex: Female

DRUGS (14)
  1. LISINOPRIL [Concomitant]
  2. BENADRYL [Concomitant]
     Indication: MULTIPLE ALLERGIES
  3. METAMUCIL-2 [Concomitant]
  4. AMIODARONE [Concomitant]
     Dosage: 200 MG
  5. BONIVA [Concomitant]
  6. INSULIN [Concomitant]
     Indication: DIABETES MELLITUS
  7. NORVASC [Concomitant]
     Dosage: 10 MG
  8. ASPIRIN [Concomitant]
  9. PRADAXA [Suspect]
     Indication: ATRIAL FIBRILLATION
     Dosage: 300 MG
     Route: 048
     Dates: start: 20110307
  10. NITROGLYCERIN [Concomitant]
  11. NEXIUM [Concomitant]
     Indication: GASTROOESOPHAGEAL REFLUX DISEASE
  12. HYDROCHLOROTHIAZIDE [Concomitant]
     Dosage: 25 MG
  13. AMBIEN [Concomitant]
     Indication: INSOMNIA
  14. HYDROCODONE BITARTRATE [Concomitant]

REACTIONS (1)
  - ASTHENIA [None]
